FAERS Safety Report 24462130 (Version 1)
Quarter: 2024Q4

REPORT INFORMATION
  Report Type: Spontaneous
  Country: US (occurrence: US)
  Receive Date: 20241018
  Receipt Date: 20241018
  Transmission Date: 20250115
  Serious: No
  Sender: CHATTEM
  Company Number: US-OPELLA-2024OHG035265

PATIENT

DRUGS (1)
  1. MEDICATED DANDRUFF [Suspect]
     Active Substance: SELENIUM SULFIDE
     Indication: Dandruff
     Route: 061

REACTIONS (2)
  - Therapeutic response shortened [Unknown]
  - No adverse event [Unknown]
